FAERS Safety Report 5568370-9 (Version None)
Quarter: 2007Q4

REPORT INFORMATION
  Report Type: 
  Country: None (occurrence: None)
  Receive Date: 20071217
  Receipt Date: 20071206
  Transmission Date: 20080405
  Serious: Yes (Hospitalization)
  Sender: FDA-Public Use
  Company Number: 231030J07USA

PATIENT
  Age: 52 Year
  Sex: Female
  Weight: 53.5244 kg

DRUGS (5)
  1. REBIF [Suspect]
     Indication: MULTIPLE SCLEROSIS
     Dosage: 44 MCG, 3 IN 1 WEEKS, SUBCUTANEOUS
     Route: 058
     Dates: start: 20030718
  2. PERCOCET [Concomitant]
  3. SYNTHROID [Concomitant]
  4. XANAX [Concomitant]
  5. AMITRIPTYLINE HCL [Concomitant]

REACTIONS (5)
  - COCCIDIOIDOMYCOSIS [None]
  - DEHYDRATION [None]
  - DEPRESSION [None]
  - PNEUMONIA [None]
  - WEIGHT DECREASED [None]
